FAERS Safety Report 8563052-3 (Version None)
Quarter: 2012Q3

REPORT INFORMATION
  Report Type: 
  Country: None (occurrence: None)
  Receive Date: 20120802
  Receipt Date: 20120723
  Transmission Date: 20120928
  Serious: No
  Sender: FDA-Public Use
  Company Number: US-AMGEN-USASP2012045942

PATIENT
  Age: 36 Year
  Sex: Male

DRUGS (1)
  1. ENBREL [Suspect]
     Indication: PSORIASIS
     Dosage: 50 MG, 2 TIMES/WK
     Dates: start: 20120721

REACTIONS (6)
  - EAR DISCOMFORT [None]
  - DRY EYE [None]
  - LACRIMATION INCREASED [None]
  - FATIGUE [None]
  - COUGH [None]
  - INJECTION SITE PAIN [None]
